FAERS Safety Report 16873192 (Version 1)
Quarter: 2019Q4

REPORT INFORMATION
  Report Type: Spontaneous
  Country: US (occurrence: US)
  Receive Date: 20191001
  Receipt Date: 20191001
  Transmission Date: 20200122
  Serious: Yes (Other)
  Sender: FDA-Public Use
  Company Number: US-BAYER-2019-175039

PATIENT
  Sex: Male

DRUGS (2)
  1. MIRENA [Suspect]
     Active Substance: LEVONORGESTREL
     Route: 064
  2. MIRENA [Suspect]
     Active Substance: LEVONORGESTREL
     Route: 064

REACTIONS (4)
  - Mental disability [None]
  - Exposure during pregnancy [None]
  - Premature baby [None]
  - Learning disability [None]

NARRATIVE: CASE EVENT DATE: 2007
